FAERS Safety Report 19698330 (Version 1)
Quarter: 2021Q3

REPORT INFORMATION
  Report Type: Spontaneous
  Country: US (occurrence: US)
  Receive Date: 20210813
  Receipt Date: 20210813
  Transmission Date: 20211014
  Serious: No
  Sender: FDA-Public Use
  Company Number: US-ADC THERAPEUTICS-ADC-2021-000103

PATIENT
  Age: 35 Year
  Sex: Male
  Weight: 120 kg

DRUGS (7)
  1. BACTRIM DS [Concomitant]
     Active Substance: SULFAMETHOXAZOLE\TRIMETHOPRIM
     Dosage: 800 MG, 3 TIMES/WK
  2. ACYCLOVIR [ACICLOVIR] [Concomitant]
     Active Substance: ACYCLOVIR
     Dosage: 400 MG, BID
  3. DEXAMETHASONE. [Concomitant]
     Active Substance: DEXAMETHASONE
     Dosage: 4 MG, BID, THE DAY BEFORE, DAY OF, AND DAY AFTER ZYNLOTA
  4. BIKTARVY [Concomitant]
     Active Substance: BICTEGRAVIR SODIUM\EMTRICITABINE\TENOFOVIR ALAFENAMIDE FUMARATE
     Dosage: UNK
  5. CLARITIN ALLERGIC [Concomitant]
     Active Substance: OXYMETAZOLINE HYDROCHLORIDE
     Dosage: 24 HR
  6. ZYNLONTA [Suspect]
     Active Substance: LONCASTUXIMAB TESIRINE-LPYL
     Indication: DIFFUSE LARGE B-CELL LYMPHOMA
     Dosage: 0.15 MG/KG
     Route: 042
     Dates: start: 20210709
  7. ZYNLONTA [Suspect]
     Active Substance: LONCASTUXIMAB TESIRINE-LPYL
     Dosage: UNK
     Route: 042
     Dates: start: 20210729

REACTIONS (4)
  - Pain [Recovered/Resolved]
  - Headache [Recovered/Resolved]
  - Hypersomnia [Unknown]
  - Fatigue [Unknown]

NARRATIVE: CASE EVENT DATE: 20210710
